FAERS Safety Report 13943311 (Version 1)
Quarter: 2017Q3

REPORT INFORMATION
  Report Type: Spontaneous
  Country: US (occurrence: None)
  Receive Date: 20170907
  Receipt Date: 20170907
  Transmission Date: 20171128
  Serious: No
  Sender: FDA-Public Use
  Company Number: None

PATIENT
  Age: 52 Year
  Sex: Female

DRUGS (1)
  1. XELJANZ [Suspect]
     Active Substance: TOFACITINIB CITRATE
     Indication: MALAISE
     Route: 048
     Dates: start: 20170804

REACTIONS (4)
  - Fatigue [None]
  - Aphthous ulcer [None]
  - Mouth ulceration [None]
  - Throat irritation [None]

NARRATIVE: CASE EVENT DATE: 20170807
